FAERS Safety Report 25312467 (Version 2)
Quarter: 2025Q3

REPORT INFORMATION
  Report Type: Report from Study
  Country: US (occurrence: US)
  Receive Date: 20250514
  Receipt Date: 20250719
  Transmission Date: 20251021
  Serious: Yes (Other)
  Sender: NOVARTIS
  Company Number: US-002147023-NVSC2025US020775

PATIENT
  Sex: Female

DRUGS (2)
  1. KESIMPTA [Suspect]
     Active Substance: OFATUMUMAB
     Indication: Product used for unknown indication
     Route: 065
  2. IBUPROFEN [Concomitant]
     Active Substance: IBUPROFEN
     Indication: Product used for unknown indication
     Route: 065

REACTIONS (8)
  - Syncope [Not Recovered/Not Resolved]
  - Brain fog [Unknown]
  - Band sensation [Unknown]
  - Accident [Unknown]
  - Asthenia [Unknown]
  - Fall [Unknown]
  - Contusion [Unknown]
  - Breast mass [Unknown]
